FAERS Safety Report 11155225 (Version 2)
Quarter: 2015Q3

REPORT INFORMATION
  Report Type: Report from Study
  Country: DE (occurrence: DE)
  Receive Date: 20150602
  Receipt Date: 20150710
  Transmission Date: 20151125
  Serious: Yes (Other)
  Sender: FDA-Public Use
  Company Number: DE-BIOGENIDEC-2015BI074058

PATIENT
  Age: 47 Year
  Sex: Female

DRUGS (4)
  1. MARCUMAR [Concomitant]
     Active Substance: PHENPROCOUMON
  2. TECFIDERA [Suspect]
     Active Substance: DIMETHYL FUMARATE
     Indication: PRODUCT USED FOR UNKNOWN INDICATION
     Route: 048
     Dates: start: 20140501
  3. XARELTO [Concomitant]
     Active Substance: RIVAROXABAN
     Indication: ANTICOAGULANT THERAPY
  4. TECFIDERA [Suspect]
     Active Substance: DIMETHYL FUMARATE
     Indication: PRODUCT USED FOR UNKNOWN INDICATION
     Route: 048

REACTIONS (9)
  - Vomiting [Unknown]
  - Cough [Recovered/Resolved with Sequelae]
  - Thrombosis [Recovered/Resolved]
  - Dizziness [Unknown]
  - Abdominal pain upper [Unknown]
  - Nausea [Unknown]
  - Gingival bleeding [Unknown]
  - Epistaxis [Unknown]
  - Influenza [Recovered/Resolved with Sequelae]

NARRATIVE: CASE EVENT DATE: 20150430
